FAERS Safety Report 9285732 (Version 1)
Quarter: 2013Q2

REPORT INFORMATION
  Report Type: Spontaneous
  Country: CA (occurrence: CA)
  Receive Date: 20130513
  Receipt Date: 20130513
  Transmission Date: 20140414
  Serious: Yes (Life-Threatening, Other)
  Sender: FDA-Public Use
  Company Number: CA-PFIZER INC-2013146511

PATIENT
  Age: 40 Year
  Sex: Female

DRUGS (5)
  1. CHAMPIX [Suspect]
     Indication: SMOKING CESSATION THERAPY
     Dosage: 1 MG, 2X/DAY
     Route: 048
     Dates: start: 20130405, end: 20130505
  2. CITALOPRAM [Concomitant]
     Dosage: 40 MG, 1X/DAY
  3. TRAZODONE [Concomitant]
     Dosage: 50 MG, 1.5 DAILY AT BEDTIME
  4. RESOTRAN [Concomitant]
     Dosage: 2 MG, 1X/DAY
  5. MULTIVITAMINS [Concomitant]
     Dosage: UNK, 1X/DAY

REACTIONS (2)
  - Suicidal ideation [Unknown]
  - Affect lability [Unknown]
